FAERS Safety Report 6994170-9 (Version None)
Quarter: 2010Q3

REPORT INFORMATION
  Report Type: 
  Country: None (occurrence: None)
  Receive Date: 20100917
  Receipt Date: 20100825
  Transmission Date: 20110219
  Serious: Yes (Hospitalization)
  Sender: FDA-Public Use
  Company Number: PHHO2010AR06447

PATIENT
  Sex: Male
  Weight: 87 kg

DRUGS (1)
  1. AFINITOR [Suspect]
     Indication: METASTATIC RENAL CELL CARCINOMA
     Dosage: 10 MG, DAILY
     Route: 048
     Dates: start: 20100119, end: 20100412

REACTIONS (6)
  - CONCOMITANT DISEASE PROGRESSION [None]
  - DIABETIC KETOACIDOSIS [None]
  - DYSPNOEA [None]
  - EMPYEMA [None]
  - PLEURAL EFFUSION [None]
  - THORACIC CAVITY DRAINAGE [None]
